FAERS Safety Report 9136374 (Version 1)
Quarter: 2013Q1

REPORT INFORMATION
  Report Type: Spontaneous
  Country: FR (occurrence: FR)
  Receive Date: 20130304
  Receipt Date: 20130304
  Transmission Date: 20140127
  Serious: Yes (Other)
  Sender: FDA-Public Use
  Company Number: FR-ASTRAZENECA-2013SE03699

PATIENT
  Age: 18995 Day
  Sex: Female

DRUGS (8)
  1. XEROQUEL [Suspect]
     Route: 048
     Dates: start: 20121022, end: 20121022
  2. XEROQUEL [Suspect]
     Route: 048
     Dates: start: 20121023, end: 20121024
  3. DEPAKOTE [Suspect]
     Route: 048
     Dates: start: 20121022
  4. ABILIFY [Suspect]
     Route: 048
     Dates: start: 20121022, end: 20121024
  5. ABILIFY [Suspect]
     Route: 048
     Dates: start: 20121026
  6. ABILIFY [Suspect]
     Route: 048
     Dates: start: 20121027
  7. LAROXYL [Suspect]
     Route: 048
     Dates: start: 20121022
  8. LEPTICUR [Suspect]
     Route: 048
     Dates: start: 20121022

REACTIONS (4)
  - Chest discomfort [Recovered/Resolved]
  - Tremor [Recovered/Resolved]
  - Tachycardia [Recovered/Resolved]
  - Dizziness [Recovered/Resolved]
